FAERS Safety Report 9455419 (Version 2)
Quarter: 2013Q4

REPORT INFORMATION
  Report Type: Report from Study
  Country: US (occurrence: US)
  Receive Date: 20130813
  Receipt Date: 20131211
  Transmission Date: 20140711
  Serious: Yes (Other)
  Sender: FDA-Public Use
  Company Number: US-BAYER-2013-096837

PATIENT
  Sex: Female

DRUGS (2)
  1. STIVARGA [Suspect]
     Indication: COLON CANCER
     Dosage: 160MG/DAY
     Dates: start: 20130702
  2. STIVARGA [Suspect]
     Indication: COLON CANCER
     Dosage: 80 MG /DAY

REACTIONS (5)
  - Blister [None]
  - Blister [None]
  - Musculoskeletal disorder [None]
  - Abasia [None]
  - Colon cancer [None]
